FAERS Safety Report 9606269 (Version 1)
Quarter: 2013Q4

REPORT INFORMATION
  Report Type: Spontaneous
  Country: US (occurrence: US)
  Receive Date: 20131008
  Receipt Date: 20131008
  Transmission Date: 20140711
  Serious: No
  Sender: FDA-Public Use
  Company Number: US-AMGEN-USASP2013046111

PATIENT
  Age: 65 Year
  Sex: Female

DRUGS (7)
  1. PROLIA [Suspect]
     Indication: OSTEOPOROSIS POSTMENOPAUSAL
     Dosage: UNK
     Dates: start: 201202
  2. ROBAXIN [Concomitant]
     Dosage: UNK
  3. NORCO [Concomitant]
     Dosage: UNK
  4. VITAMINS /90003601/ [Concomitant]
     Dosage: UNK
  5. PROBIOTIC                          /06395501/ [Concomitant]
  6. POTASSIUM [Concomitant]
  7. FISH OIL [Concomitant]
     Dosage: UNK

REACTIONS (2)
  - Stress [Unknown]
  - Tooth disorder [Unknown]
